FAERS Safety Report 9081972 (Version 1)
Quarter: 2013Q1

REPORT INFORMATION
  Report Type: Report from Study
  Country: US (occurrence: US)
  Receive Date: 20130130
  Receipt Date: 20130130
  Transmission Date: 20140127
  Serious: No
  Sender: FDA-Public Use
  Company Number: US-ABBOTT-12P-163-0967210-00

PATIENT
  Sex: Male

DRUGS (3)
  1. HUMIRA 40 MG/0.8 ML PEN [Suspect]
     Indication: PSORIASIS
     Dosage: ON DAY 1
     Dates: start: 201207, end: 201207
  2. HUMIRA 40 MG/0.8 ML PEN [Suspect]
     Dosage: ON DAY 8
  3. HUMIRA 40 MG/0.8 ML PEN [Suspect]
     Dosage: ON DAY 22

REACTIONS (2)
  - Nausea [Unknown]
  - Chills [Unknown]
